FAERS Safety Report 4544462-8 (Version None)
Quarter: 2005Q1

REPORT INFORMATION
  Report Type: 
  Country: None (occurrence: None)
  Receive Date: 20050103
  Receipt Date: 20050103
  Transmission Date: 20050727
  Serious: Yes (Hospitalization)
  Sender: FDA-Public Use
  Company Number: None

PATIENT
  Age: 60 Year
  Sex: Male
  Weight: 79.8331 kg

DRUGS (4)
  1. ENBREL [Suspect]
     Indication: SPONDYLITIS
     Dosage: 25MG    2 WEEK   SUBCUTANEO
     Route: 058
     Dates: start: 20040920, end: 20041201
  2. METHOTREXATE [Concomitant]
  3. PREDNISONE [Concomitant]
  4. OMEPRAZOLE [Concomitant]

REACTIONS (2)
  - PNEUMONIA [None]
  - POST PROCEDURAL COMPLICATION [None]
